FAERS Safety Report 5577503-X (Version None)
Quarter: 2007Q4

REPORT INFORMATION
  Report Type: 
  Country: None (occurrence: None)
  Receive Date: 20071130
  Receipt Date: 20070927
  Transmission Date: 20080405
  Serious: No
  Sender: FDA-Public Use
  Company Number: US200709006606

PATIENT
  Age: 61 Year
  Sex: Female

DRUGS (3)
  1. BYETTA [Suspect]
     Indication: TYPE 2 DIABETES MELLITUS
     Dosage: 10 UG, 2/D, SUBCUTANEOUS
     Route: 058
     Dates: start: 20070515, end: 20070710
  2. GLUCOTROL XL [Concomitant]
  3. COREG [Concomitant]

REACTIONS (4)
  - DEPRESSED MOOD [None]
  - DYSPEPSIA [None]
  - NON-CARDIAC CHEST PAIN [None]
  - PHARYNGOLARYNGEAL PAIN [None]
